FAERS Safety Report 20486403 (Version 1)
Quarter: 2022Q1

REPORT INFORMATION
  Report Type: Spontaneous
  Country: US (occurrence: US)
  Receive Date: 20220217
  Receipt Date: 20220217
  Transmission Date: 20220423
  Serious: Yes (Other)
  Sender: FDA-Public Use
  Company Number: US-GLAXOSMITHKLINE-  US2022GSK026406

PATIENT
  Sex: Male

DRUGS (12)
  1. ZANTAC [Suspect]
     Active Substance: RANITIDINE HYDROCHLORIDE
     Indication: Gastrooesophageal reflux disease
     Dosage: 75 MG, 1X/DAY IN VENEZUELA 1986 TO 2000
     Route: 065
     Dates: start: 198601, end: 202012
  2. ZANTAC [Suspect]
     Active Substance: RANITIDINE HYDROCHLORIDE
     Indication: Gastritis
     Dosage: 75 MG, 1X/WEEK 2000 TO 2020
     Route: 065
     Dates: start: 198601, end: 202012
  3. ZANTAC [Suspect]
     Active Substance: RANITIDINE HYDROCHLORIDE
     Dosage: 150 MG, 1X/DAY IN VENEZUELA 1986 TO 2000
     Route: 065
     Dates: start: 198601, end: 202012
  4. ZANTAC [Suspect]
     Active Substance: RANITIDINE HYDROCHLORIDE
     Dosage: 150 MG, 1X/WEEK 2000 TO 2020
     Route: 065
     Dates: start: 198601, end: 202012
  5. ZANTAC [Suspect]
     Active Substance: RANITIDINE HYDROCHLORIDE
     Indication: Gastrooesophageal reflux disease
     Dosage: 75 MG, 1X/DAY IN VENEZUELA 1986 TO 2000
     Route: 065
     Dates: start: 198601, end: 202012
  6. ZANTAC [Suspect]
     Active Substance: RANITIDINE HYDROCHLORIDE
     Indication: Gastritis
     Dosage: 150 MG, 1X/WEEK 2000 TO 2020
     Route: 065
     Dates: start: 198601, end: 202012
  7. ZANTAC [Suspect]
     Active Substance: RANITIDINE HYDROCHLORIDE
     Dosage: 75 MG, 1X/DAY IN VENEZUELA 1986 TO 2000
     Route: 065
     Dates: start: 198601, end: 202012
  8. ZANTAC [Suspect]
     Active Substance: RANITIDINE HYDROCHLORIDE
     Dosage: 150 MG, 1X/WEEK 2000 TO 2020
     Route: 065
     Dates: start: 198601, end: 202012
  9. RANITIDINE [Suspect]
     Active Substance: RANITIDINE
     Indication: Gastrooesophageal reflux disease
     Dosage: 75 MG, WE
     Route: 065
     Dates: start: 198601, end: 202012
  10. RANITIDINE [Suspect]
     Active Substance: RANITIDINE
     Indication: Gastritis
  11. RANITIDINE [Suspect]
     Active Substance: RANITIDINE
     Indication: Gastrooesophageal reflux disease
     Dosage: 75 MG, WE
     Route: 065
     Dates: start: 198601, end: 202012
  12. RANITIDINE [Suspect]
     Active Substance: RANITIDINE
     Indication: Gastritis

REACTIONS (1)
  - Prostate cancer [Unknown]
